FAERS Safety Report 7954307-1 (Version None)
Quarter: 2011Q4

REPORT INFORMATION
  Report Type: 
  Country: None (occurrence: None)
  Receive Date: 20111129
  Receipt Date: 20111123
  Transmission Date: 20120403
  Serious: Yes (Disabling)
  Sender: FDA-Public Use
  Company Number: 2011MA016789

PATIENT
  Age: 55 Year
  Sex: Female
  Weight: 58.9676 kg

DRUGS (2)
  1. CYMBALTA [Concomitant]
  2. GABAPENTIN [Suspect]
     Indication: COMPLEX REGIONAL PAIN SYNDROME
     Dosage: 300 MG;QD
     Dates: start: 20110801

REACTIONS (2)
  - ABASIA [None]
  - MUSCULOSKELETAL STIFFNESS [None]
